FAERS Safety Report 11867144 (Version 1)
Quarter: 2015Q4

REPORT INFORMATION
  Report Type: Spontaneous
  Country: US (occurrence: None)
  Receive Date: 20151223
  Receipt Date: 20151223
  Transmission Date: 20160305
  Serious: No
  Sender: FDA-Public Use
  Company Number: None

PATIENT
  Age: 71 Year
  Sex: Male
  Weight: 102.06 kg

DRUGS (2)
  1. ISONIAZID 300 MG BARR [Suspect]
     Active Substance: ISONIAZID
     Indication: TUBERCULOSIS
     Route: 048
     Dates: start: 20151020, end: 20151110
  2. RIFAPENTINE 150 MG SANOFI [Suspect]
     Active Substance: RIFAPENTINE
     Indication: TUBERCULOSIS
     Route: 048
     Dates: start: 20151020, end: 20151110

REACTIONS (11)
  - Tremor [None]
  - Renal injury [None]
  - Ocular hyperaemia [None]
  - Pancreatitis [None]
  - Abdominal distension [None]
  - Chest discomfort [None]
  - Abdominal pain [None]
  - Hypotension [None]
  - Hypersensitivity [None]
  - Rash [None]
  - Vomiting [None]

NARRATIVE: CASE EVENT DATE: 20151110
